FAERS Safety Report 8571690-7 (Version None)
Quarter: 2012Q3

REPORT INFORMATION
  Report Type: 
  Country: None (occurrence: None)
  Receive Date: 20120806
  Receipt Date: 20120726
  Transmission Date: 20120928
  Serious: Yes (Other)
  Sender: FDA-Public Use
  Company Number: US-JNJFOC-20120715051

PATIENT
  Age: 50 Year
  Sex: Female

DRUGS (1)
  1. TOPAMAX [Suspect]
     Indication: PRODUCT USED FOR UNKNOWN INDICATION
     Route: 048

REACTIONS (8)
  - BRONCHITIS [None]
  - ALTERED VISUAL DEPTH PERCEPTION [None]
  - PARAESTHESIA [None]
  - CHEST PAIN [None]
  - FEELING ABNORMAL [None]
  - DECREASED APPETITE [None]
  - APHASIA [None]
  - BACK PAIN [None]
